FAERS Safety Report 19800299 (Version 1)
Quarter: 2021Q3

REPORT INFORMATION
  Report Type: Report from Study
  Country: US (occurrence: US)
  Receive Date: 20210908
  Receipt Date: 20210908
  Transmission Date: 20211014
  Serious: No
  Sender: FDA-Public Use
  Company Number: US-ESPERION THERAPEUTICS, INC-2021USA01151

PATIENT
  Sex: Female

DRUGS (1)
  1. BEMPEDOIC ACID / EZETIMIBE [Suspect]
     Active Substance: BEMPEDOIC ACID\EZETIMIBE
     Indication: PRODUCT USED FOR UNKNOWN INDICATION
     Dosage: 180/10MG, UNK
     Route: 065

REACTIONS (1)
  - Therapeutic response unexpected [Unknown]
